FAERS Safety Report 18360839 (Version 1)
Quarter: 2020Q4

REPORT INFORMATION
  Report Type: Spontaneous
  Country: US (occurrence: US)
  Receive Date: 20201008
  Receipt Date: 20201008
  Transmission Date: 20210114
  Serious: No
  Sender: FDA-Public Use
  Company Number: US-MYLANLABS-2020M1083989

PATIENT
  Sex: Female

DRUGS (1)
  1. FENTANYL TRANSDERMAL SYSTEM [Suspect]
     Active Substance: FENTANYL
     Indication: PRODUCT USED FOR UNKNOWN INDICATION
     Dosage: 50 MICROGRAM, Q3D
     Route: 062

REACTIONS (2)
  - Product dose omission issue [Not Recovered/Not Resolved]
  - Product packaging quantity issue [Not Recovered/Not Resolved]
